FAERS Safety Report 20210440 (Version 2)
Quarter: 2021Q4

REPORT INFORMATION
  Report Type: Report from Study
  Country: US (occurrence: US)
  Receive Date: 20211221
  Receipt Date: 20211227
  Transmission Date: 20220303
  Serious: Yes (Other)
  Sender: FDA-Public Use
  Company Number: US-KOREA IPSEN Pharma-2021-32232

PATIENT
  Age: 25 Year
  Sex: Female

DRUGS (2)
  1. SOMATULINE DEPOT [Suspect]
     Active Substance: LANREOTIDE ACETATE
     Indication: Carcinoid tumour of the small bowel
     Route: 065
  2. SOMATULINE DEPOT [Suspect]
     Active Substance: LANREOTIDE ACETATE
     Dosage: 120MG, EVERY 30 DAYS, SUBCUTANEOUS
     Route: 058
     Dates: start: 201510

REACTIONS (3)
  - Hypoglycaemia [Recovered/Resolved with Sequelae]
  - Injection site mass [Recovered/Resolved with Sequelae]
  - Off label use [Unknown]
